FAERS Safety Report 9500018 (Version 1)
Quarter: 2013Q3

REPORT INFORMATION
  Report Type: Spontaneous
  Country: CH (occurrence: None)
  Receive Date: 20130903
  Receipt Date: 20130903
  Transmission Date: 20140515
  Serious: Yes (Death)
  Sender: FDA-Public Use
  Company Number: 2013249007

PATIENT
  Age: 82 Year
  Sex: Female

DRUGS (9)
  1. FRAGMIN [Suspect]
     Indication: PROPHYLAXIS
     Dosage: 2500 IU, SINGLE, IV BOLUS
     Dates: start: 20130807, end: 20130807
  2. THIOPENTAL [Suspect]
     Indication: ANAESTHESIA
     Dosage: 325 MG, SINGLE, IV DRIP
     Dates: start: 20130806, end: 20130806
  3. ISOFLURAN ^BAXTER^ [Suspect]
     Indication: ANAESTHESIA
     Dosage: 1 DF (1 VOLUME % OVER 8 AT 12I/MIN VIA RESPIRATORY SYSTEM (INTUBATION), RESPIRATORY
     Dates: start: 20130806, end: 20130806
  4. PERFALGAN [Suspect]
     Indication: PAIN
     Dosage: 1 G, UNK, IV DRIP
     Dates: start: 20130806, end: 20130808
  5. FENTANYL (FENTANYL) [Concomitant]
  6. METHADONE (METHADONE) [Concomitant]
  7. ULTIVA (REMIFENTANIL HYDROCHLORIDE) [Concomitant]
  8. ATRACURIUM BESILATE (ATRACURIUM BESILATE) [Concomitant]
  9. KALCIPOS-D (CALCIUM CARBONATE, COLECALCIFEROL) [Concomitant]

REACTIONS (7)
  - Pulmonary embolism [None]
  - Acute hepatic failure [None]
  - Renal failure acute [None]
  - Thrombocytopenia [None]
  - Hepatic congestion [None]
  - Cardiogenic shock [None]
  - Cardiac failure acute [None]
